FAERS Safety Report 9154806 (Version 1)
Quarter: 2013Q1

REPORT INFORMATION
  Report Type: Spontaneous
  Country: IT (occurrence: None)
  Receive Date: 20130207
  Receipt Date: 20130207
  Transmission Date: 20140127
  Serious: Yes (Hospitalization)
  Sender: FDA-Public Use
  Company Number: AUR-APL-2013-01070

PATIENT
  Age: 49 Year
  Sex: Female

DRUGS (2)
  1. AMOXICILLIN (AMOXICILLIN) [Suspect]
     Indication: TOOTH ABSCESS
     Route: 048
     Dates: start: 20121101, end: 20121108
  2. EUTIROX (LEVOTHYROXINE) [Concomitant]

REACTIONS (1)
  - Dermatitis [None]
